FAERS Safety Report 5366618-7 (Version None)
Quarter: 2007Q2

REPORT INFORMATION
  Report Type: 
  Country: None (occurrence: None)
  Receive Date: 20070622
  Receipt Date: 20070611
  Transmission Date: 20071010
  Serious: Yes (Hospitalization, Other)
  Sender: FDA-Public Use
  Company Number: US-PFIZER INC-2007030579

PATIENT
  Sex: Male
  Weight: 77 kg

DRUGS (2)
  1. CARDURA XL [Suspect]
     Indication: BENIGN PROSTATIC HYPERPLASIA
     Route: 048
     Dates: start: 20070309, end: 20070310
  2. DETROL LA [Suspect]
     Route: 048

REACTIONS (6)
  - ARTHRALGIA [None]
  - CHEST PAIN [None]
  - LIMB DISCOMFORT [None]
  - MYALGIA [None]
  - PAIN IN EXTREMITY [None]
  - RENAL CYST [None]
